FAERS Safety Report 11423534 (Version 1)
Quarter: 2015Q3

REPORT INFORMATION
  Report Type: Spontaneous
  Country: FR (occurrence: FR)
  Receive Date: 20150827
  Receipt Date: 20150827
  Transmission Date: 20151125
  Serious: Yes (Hospitalization)
  Sender: FDA-Public Use
  Company Number: FR-SA-2015SA128106

PATIENT
  Age: 58 Year
  Sex: Male

DRUGS (9)
  1. LASILIX [Suspect]
     Active Substance: FUROSEMIDE
     Route: 065
     Dates: start: 20150805
  2. PARACETAMOL [Suspect]
     Active Substance: ACETAMINOPHEN
     Route: 065
     Dates: start: 20140917
  3. XATRAL [Suspect]
     Active Substance: ALFUZOSIN
     Route: 065
     Dates: start: 20141215, end: 20150814
  4. OGASTORO [Suspect]
     Active Substance: LANSOPRAZOLE
     Route: 065
     Dates: start: 20150805, end: 20150815
  5. DEPAKINE [Suspect]
     Active Substance: VALPROATE SODIUM
     Route: 065
     Dates: start: 20150713
  6. FINASTERIDE. [Suspect]
     Active Substance: FINASTERIDE
     Route: 065
     Dates: start: 20141215, end: 20150815
  7. LIORESAL [Suspect]
     Active Substance: BACLOFEN
     Route: 065
     Dates: start: 20140318, end: 20150814
  8. SCOPODERM [Suspect]
     Active Substance: SCOPOLAMINE
     Route: 065
     Dates: start: 20140318
  9. DIFFU K [Suspect]
     Active Substance: POTASSIUM CHLORIDE
     Route: 065
     Dates: start: 20140618

REACTIONS (4)
  - Angioedema [Not Recovered/Not Resolved]
  - Urticaria [Not Recovered/Not Resolved]
  - Papule [Not Recovered/Not Resolved]
  - Rash [Not Recovered/Not Resolved]

NARRATIVE: CASE EVENT DATE: 20150817
